FAERS Safety Report 25874432 (Version 1)
Quarter: 2025Q4

REPORT INFORMATION
  Report Type: Spontaneous
  Country: US (occurrence: None)
  Receive Date: 20251002
  Receipt Date: 20251002
  Transmission Date: 20260118
  Serious: Yes (Other)
  Sender: FDA-CTU
  Company Number: None

PATIENT
  Age: 34 Year
  Sex: Male
  Weight: 70.67 kg

DRUGS (4)
  1. ARIPIPRAZOLE [Suspect]
     Active Substance: ARIPIPRAZOLE
     Indication: Affective disorder
     Dosage: FREQUENCY : DAILY;?
     Route: 048
     Dates: start: 20250719, end: 20250725
  2. aripiprazole po 10mg Daily [Concomitant]
     Dates: start: 20250719, end: 20250725
  3. fluoxetine po 40mg Daily [Concomitant]
  4. Prazosin po 2mg qHS [Concomitant]

REACTIONS (2)
  - Tachycardia [None]
  - Therapeutic response changed [None]

NARRATIVE: CASE EVENT DATE: 20250725
